FAERS Safety Report 9268275 (Version 1)
Quarter: 2013Q2

REPORT INFORMATION
  Report Type: Spontaneous
  Country: DK (occurrence: CN)
  Receive Date: 20130502
  Receipt Date: 20130502
  Transmission Date: 20140414
  Serious: Yes (Hospitalization)
  Sender: FDA-Public Use
  Company Number: CN-FRI-1000044855

PATIENT
  Age: 73 Year
  Sex: Female

DRUGS (4)
  1. CITALOPRAM [Suspect]
     Indication: AGITATED DEPRESSION
     Dosage: 20 MG
     Route: 048
     Dates: start: 2011
  2. CITALOPRAM [Suspect]
     Dosage: 30 MG
     Route: 048
  3. CITALOPRAM [Suspect]
     Dosage: 40 MG
     Route: 048
     Dates: start: 2013
  4. ORYZANOL [Concomitant]
     Indication: PRODUCT USED FOR UNKNOWN INDICATION
     Route: 048
     Dates: start: 20130421, end: 20130421

REACTIONS (8)
  - Constipation [Not Recovered/Not Resolved]
  - Flushing [Not Recovered/Not Resolved]
  - Hyperhidrosis [Not Recovered/Not Resolved]
  - Feeling of body temperature change [Not Recovered/Not Resolved]
  - Restlessness [Not Recovered/Not Resolved]
  - Dysphoria [Not Recovered/Not Resolved]
  - Depression [Not Recovered/Not Resolved]
  - Nasopharyngitis [Not Recovered/Not Resolved]
